FAERS Safety Report 5988800-8 (Version None)
Quarter: 2008Q4

REPORT INFORMATION
  Report Type: 
  Country: None (occurrence: None)
  Receive Date: 20081204
  Receipt Date: 20081114
  Transmission Date: 20090506
  Serious: Yes (Hospitalization)
  Sender: FDA-Public Use
  Company Number: 2008US003136

PATIENT
  Age: 62 Year
  Sex: Male

DRUGS (1)
  1. AMEVIVE [Suspect]
     Indication: PSORIASIS
     Dosage: 15 MG, WEEKLY, SUBCUTANEOUS
     Route: 058
     Dates: start: 20071203, end: 20080229

REACTIONS (4)
  - BACTERAEMIA [None]
  - CYSTITIS ESCHERICHIA [None]
  - PNEUMONIA [None]
  - PROSTATITIS ESCHERICHIA COLI [None]
